FAERS Safety Report 11984803 (Version 1)
Quarter: 2016Q1

REPORT INFORMATION
  Report Type: Spontaneous
  Country: US (occurrence: US)
  Receive Date: 20160201
  Receipt Date: 20160201
  Transmission Date: 20160526
  Serious: Yes (Other)
  Sender: FDA-Public Use
  Company Number: US-PFIZER INC-2016056839

PATIENT
  Age: 12 Year
  Sex: Female

DRUGS (1)
  1. QUILLIVANT XR [Suspect]
     Active Substance: METHYLPHENIDATE HYDROCHLORIDE
     Indication: ATTENTION DEFICIT/HYPERACTIVITY DISORDER
     Dosage: 10ML WHICH WAS 50MG IN THE MORNING, AND 5ML WHICH WAS 25MG IN THE LATER AFTERNOON
     Dates: start: 201305, end: 201510

REACTIONS (4)
  - Headache [Unknown]
  - Fatigue [Unknown]
  - Prescribed overdose [Unknown]
  - Seizure like phenomena [Unknown]

NARRATIVE: CASE EVENT DATE: 201510
